FAERS Safety Report 10155734 (Version 7)
Quarter: 2015Q1

REPORT INFORMATION
  Report Type: Spontaneous
  Country: US (occurrence: US)
  Receive Date: 20140506
  Receipt Date: 20150213
  Transmission Date: 20150720
  Serious: No
  Sender: FDA-Public Use
  Company Number: US-009507513-1404USA014786

PATIENT
  Sex: Male

DRUGS (3)
  1. FINASTERIDE. [Suspect]
     Active Substance: FINASTERIDE
     Indication: ANDROGENETIC ALOPECIA
     Dosage: 5 MG, UNK
     Route: 048
     Dates: start: 20070611, end: 2012
  2. PROPECIA [Suspect]
     Active Substance: FINASTERIDE
     Indication: ANDROGENETIC ALOPECIA
     Dosage: 1 MG, QD
     Route: 048
     Dates: start: 20010618, end: 20060111
  3. PROPECIA [Suspect]
     Active Substance: FINASTERIDE
     Dosage: 1 MG, QD
     Route: 048
     Dates: start: 20060826, end: 200706

REACTIONS (36)
  - Hypogonadism [Recovered/Resolved]
  - Acute sinusitis [Unknown]
  - Thoracic vertebral fracture [Unknown]
  - Acne [Unknown]
  - Melanocytic naevus [Unknown]
  - Anorgasmia [Unknown]
  - Sensory loss [Unknown]
  - Erectile dysfunction [Not Recovered/Not Resolved]
  - Varicocele [Unknown]
  - Dyslipidaemia [Recovering/Resolving]
  - Rhinitis allergic [Unknown]
  - Hyperlipidaemia [Unknown]
  - Loss of libido [Unknown]
  - Blood alkaline phosphatase increased [Unknown]
  - Lymphadenopathy [Unknown]
  - Chronic sinusitis [Unknown]
  - Bronchitis [Unknown]
  - Liver function test abnormal [Recovering/Resolving]
  - Acute sinusitis [Unknown]
  - Cat scratch disease [Unknown]
  - Otitis media [Unknown]
  - Infertility [Unknown]
  - Gynaecomastia [Unknown]
  - Genital disorder male [Unknown]
  - Acute sinusitis [Unknown]
  - Dermoid cyst [Unknown]
  - Semen volume decreased [Unknown]
  - Malaise [Unknown]
  - Neck mass [Unknown]
  - Sexual dysfunction [Not Recovered/Not Resolved]
  - Fatigue [Unknown]
  - Neck mass [Unknown]
  - Lymphadenopathy [Unknown]
  - Cervical vertebral fracture [Unknown]
  - Neoplasm skin [Unknown]
  - Skin wrinkling [Unknown]

NARRATIVE: CASE EVENT DATE: 2003
